FAERS Safety Report 4357457-4 (Version None)
Quarter: 2004Q2

REPORT INFORMATION
  Report Type: 
  Country: None (occurrence: None)
  Receive Date: 20040510
  Receipt Date: 20040505
  Transmission Date: 20050107
  Serious: Yes (Hospitalization, Other)
  Sender: FDA-Public Use
  Company Number: 200311444BVD

PATIENT
  Age: 43 Year
  Sex: Male

DRUGS (4)
  1. AVELOX [Suspect]
     Indication: BRONCHITIS ACUTE
     Dosage: 400 MG, TOTAL DAILY, ORAL
     Route: 048
  2. BETA BLOCKING AGENT [Concomitant]
  3. ACE [Concomitant]
  4. SORTIS [Concomitant]

REACTIONS (17)
  - ANAPHYLACTIC SHOCK [None]
  - ANXIETY [None]
  - BRAIN CONTUSION [None]
  - CIRCULATORY COLLAPSE [None]
  - CONVULSION [None]
  - DEPRESSION [None]
  - DISTURBANCE IN ATTENTION [None]
  - FACIAL BONES FRACTURE [None]
  - FALL [None]
  - HALLUCINATION [None]
  - HEADACHE [None]
  - PERSONALITY CHANGE [None]
  - POST CONCUSSION SYNDROME [None]
  - RIB FRACTURE [None]
  - SUICIDAL IDEATION [None]
  - TINNITUS [None]
  - TRAUMATIC INTRACRANIAL HAEMORRHAGE [None]
